FAERS Safety Report 8538280-3 (Version None)
Quarter: 2012Q3

REPORT INFORMATION
  Report Type: 
  Country: None (occurrence: None)
  Receive Date: 20120726
  Receipt Date: 20120718
  Transmission Date: 20120928
  Serious: No
  Sender: FDA-Public Use
  Company Number: US-BIOGENIDEC-2012BI026944

PATIENT
  Sex: Female

DRUGS (3)
  1. TYSABRI [Suspect]
     Indication: MULTIPLE SCLEROSIS
     Route: 042
     Dates: start: 20070202, end: 20070312
  2. VICODIN [Concomitant]
     Indication: BACK INJURY
     Route: 048
  3. TYSABRI [Suspect]
     Route: 042
     Dates: start: 20090601

REACTIONS (5)
  - LACERATION [None]
  - ROAD TRAFFIC ACCIDENT [None]
  - URINARY TRACT INFECTION [None]
  - CONTUSION [None]
  - PHARYNGITIS STREPTOCOCCAL [None]
